FAERS Safety Report 8171431-1 (Version None)
Quarter: 2012Q1

REPORT INFORMATION
  Report Type: 
  Country: None (occurrence: None)
  Receive Date: 20120228
  Receipt Date: 20120223
  Transmission Date: 20120608
  Serious: Yes (Disabling, Other)
  Sender: FDA-Public Use
  Company Number: US-PFIZER INC-2012049262

PATIENT
  Sex: Female
  Weight: 104 kg

DRUGS (1)
  1. ZOLOFT [Suspect]
     Indication: DEPRESSION
     Dosage: 200 MG, 1X/DAY
     Route: 048

REACTIONS (3)
  - KNEE OPERATION [None]
  - ARTHRITIS [None]
  - GAIT DISTURBANCE [None]
